FAERS Safety Report 4845388-2 (Version None)
Quarter: 2005Q4

REPORT INFORMATION
  Report Type: 
  Country: None (occurrence: None)
  Receive Date: 20051125
  Receipt Date: 20051114
  Transmission Date: 20060501
  Serious: Yes (Hospitalization)
  Sender: FDA-Public Use
  Company Number: 2005155465

PATIENT
  Age: 48 Year
  Sex: Female

DRUGS (10)
  1. FRAGMIN [Suspect]
     Indication: EMBOLISM VENOUS
     Dosage: 24000 I.U. (1 D), SUBCUTANEOUS
     Route: 058
     Dates: start: 20041221, end: 20041224
  2. LIQUEMAN             (HEPARIN) [Suspect]
     Indication: EMBOLISM VENOUS
     Dosage: 25000 I.U. (1 D), INTRAVENOUS
     Route: 042
     Dates: start: 20041225, end: 20050107
  3. MARCUMAR [Concomitant]
  4. VALSARTAN [Concomitant]
  5. DEURSIL (URSODEOXYCHOLIC ACID) [Concomitant]
  6. PANTOPRAZOLE SODIUM [Concomitant]
  7. TRAMADOL HCL [Concomitant]
  8. ACETAMINOPHEN [Concomitant]
  9. PREDNISOLONE [Concomitant]
  10. TEMESTA       (LORAZEPAM) [Concomitant]

REACTIONS (7)
  - ERYTHEMA [None]
  - LEUKOCYTOCLASTIC VASCULITIS [None]
  - SKIN LESION [None]
  - SKIN NECROSIS [None]
  - SYSTEMIC LUPUS ERYTHEMATOSUS [None]
  - THROMBOCYTOPENIA [None]
  - VASCULITIS [None]
